FAERS Safety Report 6222469-2 (Version None)
Quarter: 2009Q2

REPORT INFORMATION
  Report Type: 
  Country: None (occurrence: None)
  Receive Date: 20090608
  Receipt Date: 20090528
  Transmission Date: 20091009
  Serious: Yes (Other)
  Sender: FDA-Public Use
  Company Number: FR-GENENTECH-284165

PATIENT
  Sex: Female

DRUGS (9)
  1. AVASTIN [Suspect]
     Indication: RECTOSIGMOID CANCER
     Dosage: 450 MG, UNK
     Route: 042
     Dates: start: 20090318
  2. OXALIPLATIN [Suspect]
     Indication: RECTOSIGMOID CANCER
     Dosage: 170 MG, UNK
     Route: 042
     Dates: start: 20090303
  3. CAMPTOSAR [Suspect]
     Indication: RECTOSIGMOID CANCER
     Dosage: 300 MG, UNK
     Route: 042
     Dates: start: 20090303
  4. FLUOROURACIL [Suspect]
     Indication: RECTOSIGMOID CANCER
     Dosage: 800 MG, UNK
     Route: 042
     Dates: start: 20090303
  5. ELVORINE [Suspect]
     Indication: RECTOSIGMOID CANCER
     Dosage: 800 MG, UNK
     Route: 042
     Dates: start: 20090303
  6. LANSOPRAZOLE [Concomitant]
     Indication: DRUG USE FOR UNKNOWN INDICATION
     Dosage: UNK
  7. COAPROVEL [Concomitant]
     Indication: DRUG USE FOR UNKNOWN INDICATION
     Dosage: UNK
  8. LEVOTHYROX [Concomitant]
     Indication: DRUG USE FOR UNKNOWN INDICATION
     Dosage: UNK
  9. GRANOCYTE [Concomitant]
     Indication: DRUG USE FOR UNKNOWN INDICATION
     Dosage: UNK

REACTIONS (1)
  - PARAESTHESIA [None]
